FAERS Safety Report 24142818 (Version 1)
Quarter: 2024Q3

REPORT INFORMATION
  Report Type: Spontaneous
  Country: HR (occurrence: HR)
  Receive Date: 20240726
  Receipt Date: 20240726
  Transmission Date: 20241017
  Serious: Yes (Other)
  Sender: MYLAN
  Company Number: None

PATIENT
  Age: 68 Year
  Sex: Female

DRUGS (5)
  1. ALPRAZOLAM [Suspect]
     Active Substance: ALPRAZOLAM
     Indication: Product used for unknown indication
     Dosage: 10 MILLIGRAM, QD (20 TABLETS OF ALPRAZOLAM 0.5 MG)
     Route: 048
     Dates: start: 20240620, end: 20240620
  2. ALPRAZOLAM [Suspect]
     Active Substance: ALPRAZOLAM
     Indication: Product used for unknown indication
     Dosage: 14 MILLIGRAM, QD (14 TABLETS OF ALPRAZOLAM 1 MG)
     Route: 048
     Dates: start: 20240620, end: 20240620
  3. ZALDIAR [Suspect]
     Active Substance: ACETAMINOPHEN\TRAMADOL HYDROCHLORIDE
     Indication: Product used for unknown indication
     Dosage: 10 DOSAGE FORM, QD (1 DF = 1 TABLET = 37,5 MG TRAMADOL CHLORIDE + 325 MG PARACETAMOL)
     Route: 048
     Dates: start: 20240620, end: 20240620
  4. ZOLPIDEM [Suspect]
     Active Substance: ZOLPIDEM TARTRATE
     Indication: Product used for unknown indication
     Dosage: 300 MILLIGRAM, QD (30 TABLETS OF ZOLPIDEM 10 MG)
     Route: 048
     Dates: start: 20240620, end: 20240620
  5. FEVARIN [Suspect]
     Active Substance: FLUVOXAMINE MALEATE
     Indication: Product used for unknown indication
     Dosage: 2900 MILLIGRAM, QD (29 TABLETS OF FLUVOXAMIN 100 MG)
     Route: 048
     Dates: start: 20240620, end: 20240620

REACTIONS (8)
  - Hypertension [Unknown]
  - Blood pressure fluctuation [Unknown]
  - Suicide attempt [Unknown]
  - Hypotension [Unknown]
  - Depressed level of consciousness [Unknown]
  - Respiratory depression [Unknown]
  - Somnolence [Unknown]
  - Intentional overdose [Unknown]

NARRATIVE: CASE EVENT DATE: 20240620
